FAERS Safety Report 8638062 (Version 3)
Quarter: 2012Q4

REPORT INFORMATION
  Report Type: 
  Country: US (occurrence: US)
  Receive Date: 20120627
  Receipt Date: 20120913
  Transmission Date: 20130627
  Serious: Yes (Hospitalization)
  Sender: FDA-Public Use
  Company Number: US-PFIZER INC-2011057194

PATIENT
  Age: 18 Year
  Sex: Female
  Weight: 45.6 kg

DRUGS (4)
  1. CRIZOTINIB [Suspect]
     Indication: SARCOMA
     Dosage: 250 mg, 2x/day
     Route: 048
     Dates: start: 20110228, end: 20110314
  2. BACTRIM DS [Concomitant]
     Indication: ANTIFUNGAL PROPHYLAXIS
     Dosage: UNK
     Route: 048
     Dates: start: 20101210
  3. FENTANYL [Concomitant]
     Indication: PAIN
     Dosage: UNK
     Route: 062
     Dates: start: 20101210
  4. ZOFRAN [Concomitant]
     Indication: NAUSEA
     Dosage: UNK
     Route: 048
     Dates: start: 20101210

REACTIONS (4)
  - Dehydration [Recovered/Resolved]
  - Vomiting [Recovered/Resolved]
  - Hypercalcaemia [Recovered/Resolved]
  - Back pain [Recovered/Resolved with Sequelae]
